FAERS Safety Report 20303727 (Version 1)
Quarter: 2022Q1

REPORT INFORMATION
  Report Type: Spontaneous
  Country: US (occurrence: US)
  Receive Date: 20220106
  Receipt Date: 20220106
  Transmission Date: 20220423
  Serious: No
  Sender: FDA-Public Use
  Company Number: US-GLENMARK PHARMACEUTICALS-2021GMK053862

PATIENT

DRUGS (1)
  1. CLOBETASOL PROPIONATE [Suspect]
     Active Substance: CLOBETASOL PROPIONATE
     Indication: Product used for unknown indication
     Dosage: UNK
     Route: 061

REACTIONS (7)
  - Blister [Unknown]
  - Skin plaque [Unknown]
  - Skin weeping [Unknown]
  - Extra dose administered [Unknown]
  - Skin exfoliation [Unknown]
  - Skin burning sensation [Unknown]
  - Pain of skin [Unknown]
